FAERS Safety Report 23651116 (Version 1)
Quarter: 2024Q1

REPORT INFORMATION
  Report Type: Report from Study
  Country: US (occurrence: US)
  Receive Date: 20240320
  Receipt Date: 20240320
  Transmission Date: 20240410
  Serious: Yes (Hospitalization, Other)
  Sender: FDA-Public Use
  Company Number: US-SA-SAC20240207001496

PATIENT
  Age: 8 Month
  Sex: Female

DRUGS (1)
  1. IMIGLUCERASE [Suspect]
     Active Substance: IMIGLUCERASE
     Indication: Gaucher^s disease
     Dosage: 800 (UNITS NOT KNOWN), QOW
     Route: 042
     Dates: start: 20240227

REACTIONS (11)
  - Bradycardia [Recovering/Resolving]
  - Hypoxia [Recovering/Resolving]
  - Gait disturbance [Recovering/Resolving]
  - Foaming at mouth [Recovering/Resolving]
  - Mental disorder [Recovering/Resolving]
  - Breath holding [Recovering/Resolving]
  - Femoral pulse decreased [Recovering/Resolving]
  - Vomiting [Recovering/Resolving]
  - Cyanosis [Recovering/Resolving]
  - Pyrexia [Recovering/Resolving]
  - Product prescribing issue [Unknown]

NARRATIVE: CASE EVENT DATE: 20240227
